FAERS Safety Report 24835602 (Version 1)
Quarter: 2025Q1

REPORT INFORMATION
  Report Type: Spontaneous
  Country: US (occurrence: US)
  Receive Date: 20250113
  Receipt Date: 20250113
  Transmission Date: 20250409
  Serious: Yes (Other)
  Sender: AMGEN
  Company Number: US-AMGEN-USASP2025005071

PATIENT

DRUGS (3)
  1. BEVACIZUMAB [Suspect]
     Active Substance: BEVACIZUMAB
     Indication: Myelodysplastic syndrome
     Dosage: 5 MILLIGRAM/KILOGRAM, Q2WK, C2-4
     Route: 065
  2. ABALOPARATIDE [Concomitant]
     Active Substance: ABALOPARATIDE
     Indication: Myelodysplastic syndrome
     Dosage: 80 MICROGRAM, QD, DURING CYCLE I (C1)
     Route: 065
  3. ABALOPARATIDE [Concomitant]
     Active Substance: ABALOPARATIDE
     Dosage: 80 MICROGRAM, QD, C2-4
     Route: 065

REACTIONS (2)
  - Large intestine perforation [Unknown]
  - Off label use [Unknown]
